FAERS Safety Report 6504101-3 (Version None)
Quarter: 2009Q4

REPORT INFORMATION
  Report Type: 
  Country: None (occurrence: None)
  Receive Date: 20091216
  Receipt Date: 20091216
  Transmission Date: 20100525
  Serious: Yes (Hospitalization)
  Sender: FDA-Public Use
  Company Number: None

PATIENT
  Age: 45 Year
  Sex: Female
  Weight: 65.9 kg

DRUGS (2)
  1. PHENERGAN HCL [Suspect]
     Indication: NAUSEA
     Dosage: 25 MG IV
     Route: 042
     Dates: start: 20091204
  2. PHENERGAN HCL [Suspect]
     Indication: VOMITING
     Dosage: 25 MG IV
     Route: 042
     Dates: start: 20091204

REACTIONS (3)
  - INJECTION SITE OEDEMA [None]
  - INJECTION SITE PAIN [None]
  - MOVEMENT DISORDER [None]
